FAERS Safety Report 5526348-5 (Version None)
Quarter: 2007Q4

REPORT INFORMATION
  Report Type: 
  Country: None (occurrence: None)
  Receive Date: 20071127
  Receipt Date: 20071115
  Transmission Date: 20080405
  Serious: Yes (Other)
  Sender: FDA-Public Use
  Company Number: US-KINGPHARMUSA00001-K200701493

PATIENT

DRUGS (1)
  1. EPIPEN JR. [Suspect]
     Dosage: UNK, SINGLE
     Dates: start: 20071115, end: 20071115

REACTIONS (4)
  - ACCIDENTAL EXPOSURE [None]
  - CONTUSION [None]
  - HYPOAESTHESIA [None]
  - INJECTION SITE PALLOR [None]
